FAERS Safety Report 9381216 (Version 1)
Quarter: 2013Q3

REPORT INFORMATION
  Report Type: Spontaneous
  Country: FR (occurrence: FR)
  Receive Date: 20130703
  Receipt Date: 20130703
  Transmission Date: 20140515
  Serious: Yes (Hospitalization, Other)
  Sender: FDA-Public Use
  Company Number: FR-ASTRAZENECA-2013SE48581

PATIENT
  Age: 28741 Day
  Sex: Female

DRUGS (7)
  1. HYTACAND [Suspect]
     Indication: HYPERTENSION
     Dosage: 16 MG/12.5 MG PER DOSE, 1 DF PER DAY
     Route: 048
     Dates: start: 2011, end: 20130603
  2. LEVOTHYROX [Concomitant]
  3. TEMERIT [Concomitant]
  4. AMLOR [Concomitant]
  5. INEXIUM [Concomitant]
  6. FENOFIBRATE [Concomitant]
  7. GLUCOPHAGE [Concomitant]

REACTIONS (3)
  - Gastroenteritis [Unknown]
  - Dehydration [Unknown]
  - Renal failure acute [Recovering/Resolving]
